FAERS Safety Report 4436170-9 (Version None)
Quarter: 2004Q3

REPORT INFORMATION
  Report Type: 
  Country: None (occurrence: None)
  Receive Date: 20040830
  Receipt Date: 20040503
  Transmission Date: 20050211
  Serious: Yes (Disabling, Other)
  Sender: FDA-Public Use
  Company Number: US-BRISTOL-MYERS SQUIBB COMPANY-12577003

PATIENT
  Age: 73 Year
  Sex: Male
  Weight: 93 kg

DRUGS (7)
  1. ERBITUX [Suspect]
     Indication: COLON CANCER
     Dosage: LOADING DOSE: 400MG/M2=840MG; SECOND DOSE: 250MG/M2=525MG
     Route: 042
     Dates: start: 20040422, end: 20040422
  2. CARBAMAZEPINE [Concomitant]
  3. NEURONTIN [Concomitant]
  4. PREVACID [Concomitant]
  5. PROSCAR [Concomitant]
  6. TOPROL-XL [Concomitant]
  7. TRIAMTERENE [Concomitant]

REACTIONS (4)
  - BLISTER [None]
  - PAIN OF SKIN [None]
  - RASH ERYTHEMATOUS [None]
  - RASH PRURITIC [None]
